FAERS Safety Report 23297252 (Version 1)
Quarter: 2023Q4

REPORT INFORMATION
  Report Type: Spontaneous
  Country: US (occurrence: None)
  Receive Date: 20231214
  Receipt Date: 20231214
  Transmission Date: 20240109
  Serious: No
  Sender: FDA-Public Use
  Company Number: None

PATIENT
  Age: 77 Year
  Sex: Male
  Weight: 109.7 kg

DRUGS (1)
  1. LEQEMBI [Suspect]
     Active Substance: LECANEMAB-IRMB

REACTIONS (4)
  - Confusional state [None]
  - Incontinence [None]
  - Tremor [None]
  - Feeling abnormal [None]

NARRATIVE: CASE EVENT DATE: 20231213
